FAERS Safety Report 5802920-X (Version None)
Quarter: 2008Q3

REPORT INFORMATION
  Report Type: 
  Country: None (occurrence: None)
  Receive Date: 20080708
  Receipt Date: 20080701
  Transmission Date: 20090109
  Serious: Yes (Life-Threatening, Hospitalization, Other)
  Sender: FDA-Public Use
  Company Number: US-RB-001375-08

PATIENT
  Age: 27 Year
  Sex: Male

DRUGS (6)
  1. SUBOXONE [Suspect]
     Route: 060
     Dates: start: 20080101, end: 20080501
  2. SEROQUEL [Concomitant]
     Indication: INSOMNIA
     Route: 048
  3. LITHIUM CARBONATE [Concomitant]
     Indication: DRUG USE FOR UNKNOWN INDICATION
     Route: 048
  4. GEODON [Concomitant]
     Indication: BIPOLAR DISORDER
     Route: 048
  5. KLONOPIN [Suspect]
     Indication: ANXIETY
     Route: 048
  6. ZOLOFT [Concomitant]
     Indication: DEPRESSION
     Route: 048

REACTIONS (6)
  - ENCEPHALOPATHY [None]
  - FLAT AFFECT [None]
  - HYPERHIDROSIS [None]
  - INCONTINENCE [None]
  - LOSS OF CONSCIOUSNESS [None]
  - TREMOR [None]
